FAERS Safety Report 12924932 (Version 1)
Quarter: 2016Q4

REPORT INFORMATION
  Report Type: Spontaneous
  Country: US (occurrence: US)
  Receive Date: 20161108
  Receipt Date: 20161108
  Transmission Date: 20170207
  Serious: No
  Sender: FDA-Public Use
  Company Number: US-APOTEX-2016AP009988

PATIENT
  Sex: Female

DRUGS (1)
  1. LEFLUNOMIDE. [Suspect]
     Active Substance: LEFLUNOMIDE
     Indication: RHEUMATIC DISORDER
     Dosage: 7 MG, UNK
     Route: 065
     Dates: start: 20160721

REACTIONS (5)
  - Nervous system disorder [Recovering/Resolving]
  - Product packaging quantity issue [Unknown]
  - Rheumatic disorder [Recovering/Resolving]
  - Drug ineffective [Recovering/Resolving]
  - Condition aggravated [Recovering/Resolving]

NARRATIVE: CASE EVENT DATE: 20160721
